FAERS Safety Report 4686703-2 (Version None)
Quarter: 2005Q2

REPORT INFORMATION
  Report Type: 
  Country: None (occurrence: None)
  Receive Date: 20050608
  Receipt Date: 20050524
  Transmission Date: 20051028
  Serious: Yes (Death)
  Sender: FDA-Public Use
  Company Number: 214735

PATIENT
  Age: 45 Year
  Sex: Male
  Weight: 65 kg

DRUGS (9)
  1. RITUXAN [Suspect]
     Indication: NON-HODGKIN'S LYMPHOMA
     Dosage: 700 MG , INTRAVENOUS
     Route: 042
     Dates: start: 20010905, end: 20020130
  2. CYCLOPHOSPHAMIDE [Suspect]
     Indication: NON-HODGKIN'S LYMPHOMA
     Dosage: 1200 MG, INTRAVENOUS
     Route: 042
     Dates: start: 20010907, end: 20010907
  3. VEPESID [Suspect]
     Indication: NON-HODGKIN'S LYMPHOMA
     Dosage: 50 MG, INTRAVENOUS
     Route: 042
     Dates: start: 20010907, end: 20010910
  4. CYTARABINE [Suspect]
     Indication: NON-HODGKIN'S LYMPHOMA
     Dosage: 300 MG, INTRAVENOUS
     Route: 042
     Dates: start: 20010909, end: 20010910
  5. FLUDARABINE PHOSPHATE [Suspect]
     Indication: NON-HODGKIN'S LYMPHOMA
     Dosage: 50 MG, INTRAVENOUS
     Route: 042
     Dates: start: 20020124, end: 20020127
  6. ALKERAN [Suspect]
     Indication: NON-HODGKIN'S LYMPHOMA
     Dosage: 100 MG, INTRAVENOUS
     Route: 042
     Dates: start: 20020127, end: 20020128
  7. DECADRON [Concomitant]
  8. LOXONIN (LOXOPROFEN SODIUM) [Concomitant]
  9. POLARAMINE [Concomitant]

REACTIONS (5)
  - BRAIN STEM INFARCTION [None]
  - COMPLICATIONS OF BONE MARROW TRANSPLANT [None]
  - DEPRESSED LEVEL OF CONSCIOUSNESS [None]
  - ENCEPHALITIS VIRAL [None]
  - STEM CELL TRANSPLANT [None]
